FAERS Safety Report 7073076-3 (Version None)
Quarter: 2010Q4

REPORT INFORMATION
  Report Type: 
  Country: None (occurrence: None)
  Receive Date: 20101029
  Receipt Date: 20100716
  Transmission Date: 20110411
  Serious: No
  Sender: FDA-Public Use
  Company Number: A0855900A

PATIENT
  Age: 62 Year
  Sex: Female

DRUGS (9)
  1. ADVAIR DISKUS 100/50 [Suspect]
     Indication: CHRONIC OBSTRUCTIVE PULMONARY DISEASE
     Dosage: 1PUFF TWICE PER DAY
     Route: 055
  2. FEXOFENADINE HCL [Concomitant]
  3. FUROSEMIDE [Concomitant]
  4. GLUCOSAMINE [Concomitant]
  5. AYR SALINE [Concomitant]
  6. ASPIRIN [Concomitant]
  7. UNKNOWN DRUG [Concomitant]
  8. SIMVASTATIN [Concomitant]
  9. SINGULAIR [Concomitant]

REACTIONS (6)
  - CHEST PAIN [None]
  - CHRONIC OBSTRUCTIVE PULMONARY DISEASE [None]
  - DRUG INEFFECTIVE [None]
  - DYSPNOEA [None]
  - FEELING ABNORMAL [None]
  - PRODUCT QUALITY ISSUE [None]
